FAERS Safety Report 8009974-3 (Version None)
Quarter: 2011Q4

REPORT INFORMATION
  Report Type: 
  Country: None (occurrence: None)
  Receive Date: 20111123
  Receipt Date: 20110826
  Transmission Date: 20120403
  Serious: No
  Sender: FDA-Public Use
  Company Number: 334748

PATIENT
  Age: 60 Year
  Sex: Male
  Weight: 77.1115 kg

DRUGS (1)
  1. VICTOZA [Suspect]
     Indication: TYPE 2 DIABETES MELLITUS
     Dosage: 0.6 MG, QD, SUBCUTANEOUS 1.2 MG, QD 1.8 MG, QD, SUBCUTANEOUS
     Route: 058
     Dates: start: 20090101

REACTIONS (3)
  - VOMITING [None]
  - NAUSEA [None]
  - WEIGHT DECREASED [None]
